FAERS Safety Report 6615968-2 (Version None)
Quarter: 2010Q1

REPORT INFORMATION
  Report Type: 
  Country: None (occurrence: None)
  Receive Date: 20100305
  Receipt Date: 20100226
  Transmission Date: 20100710
  Serious: Yes (Death)
  Sender: FDA-Public Use
  Company Number: A0848121A

PATIENT
  Age: 55 Year
  Sex: Female

DRUGS (2)
  1. ZOFRAN [Suspect]
     Indication: DRUG USE FOR UNKNOWN INDICATION
     Dosage: 8MG UNKNOWN
     Route: 065
  2. VALTREX [Suspect]
     Indication: DRUG USE FOR UNKNOWN INDICATION
     Dosage: 500MG UNKNOWN
     Route: 065

REACTIONS (1)
  - DEATH [None]
